FAERS Safety Report 6592851-2 (Version None)
Quarter: 2010Q1

REPORT INFORMATION
  Report Type: 
  Country: None (occurrence: None)
  Receive Date: 20100212
  Receipt Date: 20100202
  Transmission Date: 20100710
  Serious: Yes (Death)
  Sender: FDA-Public Use
  Company Number: 2010SP006729

PATIENT

DRUGS (1)
  1. ORGALUTRAN (GANIRELEX /01453701/) [Suspect]
     Indication: DRUG EXPOSURE VIA BREAST MILK
     Dosage: TRMA
     Route: 063

REACTIONS (1)
  - DRUG EXPOSURE VIA BREAST MILK [None]
